FAERS Safety Report 7439287-X (Version None)
Quarter: 2011Q2

REPORT INFORMATION
  Report Type: 
  Country: None (occurrence: None)
  Receive Date: 20110427
  Receipt Date: 20091128
  Transmission Date: 20111010
  Serious: Yes (Death, Other)
  Sender: FDA-Public Use
  Company Number: US-BAYER-200941038NA

PATIENT
  Age: 84 Year
  Sex: Male
  Weight: 77.551 kg

DRUGS (5)
  1. TRASYLOL [Suspect]
     Indication: CORONARY ARTERY BYPASS
     Route: 042
     Dates: start: 20021104
  2. IMIPENEM [Concomitant]
     Dosage: 250 MG, BID
     Route: 042
  3. VANCOMYCIN [Concomitant]
     Dosage: 1 G, UNK
     Route: 042
  4. CEFTAZIDIME [Concomitant]
  5. CEFOTAXIME [Concomitant]

REACTIONS (6)
  - RENAL FAILURE [None]
  - PAIN [None]
  - INJURY [None]
  - ANXIETY [None]
  - DEATH [None]
  - EMOTIONAL DISTRESS [None]
